FAERS Safety Report 9701174 (Version 1)
Quarter: 2013Q4

REPORT INFORMATION
  Report Type: Spontaneous
  Country: US (occurrence: US)
  Receive Date: 20131121
  Receipt Date: 20131121
  Transmission Date: 20140711
  Serious: No
  Sender: FDA-Public Use
  Company Number: US-GILEAD-2008-0015960

PATIENT
  Sex: Female
  Weight: 47.63 kg

DRUGS (11)
  1. LETAIRIS [Suspect]
     Indication: PULMONARY ARTERIAL HYPERTENSION
     Route: 048
     Dates: start: 20080125
  2. CYMBALTA [Concomitant]
     Route: 048
  3. METHOTREXATE [Concomitant]
     Route: 048
  4. CUPRIMINE [Concomitant]
     Route: 048
  5. MEDROL [Concomitant]
     Route: 048
  6. AMBIEN [Concomitant]
     Route: 048
  7. PROCARDIA XL [Concomitant]
     Route: 048
  8. COLCHICINE [Concomitant]
     Route: 048
  9. FOLIC ACID [Concomitant]
     Route: 048
  10. PRILOSEC [Concomitant]
     Route: 048
  11. LORTAB [Concomitant]
     Route: 048

REACTIONS (3)
  - Haematuria [Unknown]
  - Constipation [Unknown]
  - Abdominal pain [Unknown]
